FAERS Safety Report 6782633-0 (Version None)
Quarter: 2010Q2

REPORT INFORMATION
  Report Type: 
  Country: None (occurrence: None)
  Receive Date: 20100621
  Receipt Date: 20100609
  Transmission Date: 20101027
  Serious: Yes (Other)
  Sender: FDA-Public Use
  Company Number: JP-PFIZER INC-2010072400

PATIENT
  Sex: Male

DRUGS (1)
  1. SOLANAX [Suspect]

REACTIONS (3)
  - DIZZINESS [None]
  - POLLAKIURIA [None]
  - THIRST [None]
